FAERS Safety Report 24295274 (Version 1)
Quarter: 2024Q3

REPORT INFORMATION
  Report Type: Spontaneous
  Country: US (occurrence: US)
  Receive Date: 20240907
  Receipt Date: 20240907
  Transmission Date: 20241017
  Serious: Yes (Other)
  Sender: GLENMARK
  Company Number: US-GLENMARK PHARMACEUTICALS-2024GMK093762

PATIENT

DRUGS (3)
  1. NICARDIPINE HYDROCHLORIDE [Suspect]
     Active Substance: NICARDIPINE HYDROCHLORIDE
     Indication: Hypertension
     Dosage: 2.5 MG/H, INTO A LEFT FOREARM VEIN (FORMULATION: INFUSION)
     Route: 042
  2. NICARDIPINE HYDROCHLORIDE [Suspect]
     Active Substance: NICARDIPINE HYDROCHLORIDE
     Dosage: UPWARD TITRATION OF THIS DRUG IN INCREMENTS OF 2.5 MG/H EVERY 5-15 MIN
     Route: 042
  3. NICARDIPINE HYDROCHLORIDE [Suspect]
     Active Substance: NICARDIPINE HYDROCHLORIDE
     Dosage: ABOUT 1 MIN AFTER THE INFUSION RATE WAS INCREASED TO 12.5 MG/H
     Route: 042

REACTIONS (1)
  - Anaphylactoid reaction [Recovered/Resolved]
